FAERS Safety Report 6063383-5 (Version None)
Quarter: 2009Q1

REPORT INFORMATION
  Report Type: 
  Country: None (occurrence: None)
  Receive Date: 20090203
  Receipt Date: 20090122
  Transmission Date: 20090719
  Serious: Yes (Hospitalization, Other)
  Sender: FDA-Public Use
  Company Number: US-PFIZER INC-2009162429

PATIENT
  Sex: Female
  Weight: 73 kg

DRUGS (7)
  1. DOXORUBICIN HCL [Suspect]
     Indication: BREAST CANCER
     Dosage: UNK
     Route: 042
     Dates: start: 20080908, end: 20080908
  2. DOXORUBICIN HCL [Suspect]
     Dosage: UNK
     Route: 042
     Dates: start: 20090929, end: 20090929
  3. CYCLOPHOSPHAMIDE [Suspect]
     Indication: BREAST CANCER
     Dosage: UNK
     Route: 042
     Dates: start: 20080908, end: 20080908
  4. CYCLOPHOSPHAMIDE [Suspect]
     Dosage: UNK
     Route: 042
     Dates: start: 20090929, end: 20090929
  5. TAXOTERE [Suspect]
     Indication: BREAST CANCER
     Dosage: UNK
     Route: 042
     Dates: start: 20080908, end: 20080908
  6. TAXOTERE [Suspect]
     Dosage: UNK
     Route: 042
     Dates: start: 20080818, end: 20080818
  7. TAXOTERE [Suspect]
     Dosage: UNK
     Route: 042
     Dates: start: 20090929, end: 20090929

REACTIONS (13)
  - ASTHMA [None]
  - BRONCHOSPASM [None]
  - COUGH [None]
  - CRYING [None]
  - DYSPNOEA [None]
  - EMOTIONAL DISORDER [None]
  - HYPOXIA [None]
  - LOSS OF CONSCIOUSNESS [None]
  - LUNG INFILTRATION [None]
  - MALAISE [None]
  - NASOPHARYNGITIS [None]
  - PNEUMONITIS CHEMICAL [None]
  - VOMITING [None]
